FAERS Safety Report 7643003-6 (Version None)
Quarter: 2011Q3

REPORT INFORMATION
  Report Type: 
  Country: None (occurrence: None)
  Receive Date: 20110728
  Receipt Date: 20110721
  Transmission Date: 20111222
  Serious: Yes (Hospitalization)
  Sender: FDA-Public Use
  Company Number: JP-MERCK-1107USA02826

PATIENT
  Age: 58 Year
  Sex: Male

DRUGS (10)
  1. DANTRIUM [Concomitant]
     Dosage: DAILY DOSAGE UNKNOWN
     Route: 065
     Dates: end: 20110708
  2. TOFRANIL [Concomitant]
     Route: 048
     Dates: end: 20110708
  3. MAGMITT [Concomitant]
     Dosage: DAILY DOSAGE UNKNOWN
     Route: 048
     Dates: end: 20110708
  4. AMARYL [Concomitant]
     Indication: DIABETES MELLITUS
     Dosage: DAILY DOSAGE UNKNOWN
     Route: 048
     Dates: start: 20100621, end: 20110708
  5. JANUVIA [Suspect]
     Indication: DIABETES MELLITUS
     Route: 048
     Dates: start: 20110224, end: 20110708
  6. HITOCOBAMIN-M [Concomitant]
     Dosage: DAILY DOSAGE UNKNOWN
     Route: 065
     Dates: end: 20110708
  7. LEXOTAN [Concomitant]
     Dosage: DAILY DOSAGE UNKNOWN
     Route: 048
     Dates: end: 20110708
  8. LIPIDIL [Concomitant]
     Dosage: DAILY DOSAGE UNKNOWN
     Route: 048
     Dates: end: 20110708
  9. ALPRAZOLAM [Concomitant]
     Dosage: DAILY DOSAGE UNKNOWN
     Route: 048
     Dates: end: 20110708
  10. ALOSENN [Concomitant]
     Dosage: DAILY DOSAGE UNKNOWN
     Route: 048
     Dates: end: 20110708

REACTIONS (2)
  - DEHYDRATION [None]
  - PANCREATITIS ACUTE [None]
